FAERS Safety Report 4469326-X (Version None)
Quarter: 2004Q4

REPORT INFORMATION
  Report Type: 
  Country: None (occurrence: None)
  Receive Date: 20041008
  Receipt Date: 20031209
  Transmission Date: 20050328
  Serious: No
  Sender: FDA-Public Use
  Company Number: US-BRISTOL-MYERS SQUIBB COMPANY-12457586

PATIENT
  Age: 66 Year
  Sex: Female

DRUGS (4)
  1. AVAPRO [Suspect]
     Indication: HYPERTENSION
     Route: 048
     Dates: start: 20030601
  2. LIBRAX [Concomitant]
  3. DOVONEX [Concomitant]
  4. DOVOBET [Concomitant]

REACTIONS (2)
  - BLOOD ALKALINE PHOSPHATASE ABNORMAL [None]
  - GAMMA-GLUTAMYLTRANSFERASE ABNORMAL [None]
